FAERS Safety Report 18745402 (Version 1)
Quarter: 2021Q1

REPORT INFORMATION
  Report Type: Spontaneous
  Country: IT (occurrence: IT)
  Receive Date: 20210115
  Receipt Date: 20210115
  Transmission Date: 20210419
  Serious: Yes (Other)
  Sender: FDA-Public Use
  Company Number: IT-PFIZER INC-2021019860

PATIENT
  Age: 4 Year
  Sex: Male
  Weight: 18 kg

DRUGS (14)
  1. FASTURTEC [Concomitant]
     Active Substance: RASBURICASE
  2. DEURSIL [Concomitant]
     Active Substance: URSODIOL
  3. IFOSFAMIDE. [Suspect]
     Active Substance: IFOSFAMIDE
     Indication: BURKITT^S LYMPHOMA
     Dosage: 600 MG, CYCLIC
     Route: 042
     Dates: start: 20200402, end: 20200406
  4. UROMITEXAN [Concomitant]
     Active Substance: MESNA
  5. PANTOPRAZOLE [Concomitant]
     Active Substance: PANTOPRAZOLE
  6. BACTRIM [Concomitant]
     Active Substance: SULFAMETHOXAZOLE\TRIMETHOPRIM
  7. DEXAMETHASONE. [Concomitant]
     Active Substance: DEXAMETHASONE
  8. LASIX [Concomitant]
     Active Substance: FUROSEMIDE
  9. METHOTREXATE SODIUM. [Suspect]
     Active Substance: METHOTREXATE SODIUM
     Indication: BURKITT^S LYMPHOMA
     Dosage: 3750MG, CYCLIC
     Route: 042
     Dates: start: 20200402, end: 20200403
  10. ETOPOSIDE. [Suspect]
     Active Substance: ETOPOSIDE
     Indication: BURKITT^S LYMPHOMA
     Dosage: 75MG, CYCLIC
     Route: 042
     Dates: start: 20200405, end: 20200406
  11. LEDERFOLIN [Concomitant]
     Active Substance: LEUCOVORIN CALCIUM
  12. CYTARABINE. [Suspect]
     Active Substance: CYTARABINE
     Indication: BURKITT^S LYMPHOMA
     Dosage: 112.5MG, CYCLIC
     Route: 042
     Dates: start: 20200405, end: 20200406
  13. VINCRISTINE SULFATE. [Suspect]
     Active Substance: VINCRISTINE SULFATE
     Indication: BURKITT^S LYMPHOMA
     Dosage: 1.12MG, CYCLIC
     Route: 042
     Dates: start: 20200402, end: 20200402
  14. ZOFRAN [Concomitant]
     Active Substance: ONDANSETRON HYDROCHLORIDE

REACTIONS (2)
  - Haematemesis [Recovering/Resolving]
  - Epistaxis [Recovering/Resolving]

NARRATIVE: CASE EVENT DATE: 20200406
